FAERS Safety Report 7970770-4 (Version None)
Quarter: 2011Q4

REPORT INFORMATION
  Report Type: 
  Country: None (occurrence: None)
  Receive Date: 20111212
  Receipt Date: 20111202
  Transmission Date: 20120403
  Serious: Yes (Other)
  Sender: FDA-Public Use
  Company Number: PHHY2011BR105979

PATIENT
  Age: 35 Year
  Sex: Female

DRUGS (2)
  1. BENZETACIL [Concomitant]
     Dosage: 2 ML, UNK
  2. VOLTAREN [Suspect]
     Dosage: 75MG/3ML, UNK

REACTIONS (1)
  - APPLICATION SITE ABSCESS [None]
